FAERS Safety Report 10193407 (Version 1)
Quarter: 2014Q2

REPORT INFORMATION
  Report Type: Spontaneous
  Country: US (occurrence: US)
  Receive Date: 20140524
  Receipt Date: 20140524
  Transmission Date: 20141212
  Serious: No
  Sender: FDA-Public Use
  Company Number: US-SA-2013SA122926

PATIENT
  Sex: Male

DRUGS (2)
  1. LANTUS SOLOSTAR [Suspect]
     Indication: TYPE 2 DIABETES MELLITUS
     Dosage: DOSE:5 UNIT(S)
     Route: 051
     Dates: start: 20131121
  2. SOLOSTAR [Concomitant]

REACTIONS (3)
  - Injury associated with device [Unknown]
  - Blood glucose increased [Recovered/Resolved]
  - Injection site pain [Recovered/Resolved]
